FAERS Safety Report 9430467 (Version 1)
Quarter: 2013Q3

REPORT INFORMATION
  Report Type: Report from Study
  Country: US (occurrence: US)
  Receive Date: 20130730
  Receipt Date: 20130730
  Transmission Date: 20140515
  Serious: No
  Sender: FDA-Public Use
  Company Number: US-ABBOTT-13P-163-1083866-00

PATIENT
  Sex: Male
  Weight: 102.15 kg

DRUGS (7)
  1. NIASPAN (COATED) [Suspect]
     Indication: HIGH DENSITY LIPOPROTEIN DECREASED
     Dates: start: 2003, end: 2011
  2. NIASPAN (COATED) [Suspect]
     Indication: LOW DENSITY LIPOPROTEIN INCREASED
     Dates: start: 2011
  3. ASA [Concomitant]
     Indication: PRODUCT USED FOR UNKNOWN INDICATION
  4. SYNTHROID [Concomitant]
     Indication: PRODUCT USED FOR UNKNOWN INDICATION
  5. METFORMIN [Concomitant]
     Indication: PRODUCT USED FOR UNKNOWN INDICATION
  6. ATENOLOL [Concomitant]
     Indication: PRODUCT USED FOR UNKNOWN INDICATION
  7. LIPITOR [Concomitant]
     Indication: PRODUCT USED FOR UNKNOWN INDICATION

REACTIONS (8)
  - Flushing [Not Recovered/Not Resolved]
  - Skin burning sensation [Recovered/Resolved]
  - Paraesthesia [Recovered/Resolved]
  - Hypoaesthesia [Recovered/Resolved]
  - Hypoaesthesia [Not Recovered/Not Resolved]
  - Paraesthesia [Not Recovered/Not Resolved]
  - Skin burning sensation [Not Recovered/Not Resolved]
  - Diabetes mellitus [Not Recovered/Not Resolved]
